FAERS Safety Report 7690297-7 (Version None)
Quarter: 2011Q3

REPORT INFORMATION
  Report Type: 
  Country: None (occurrence: None)
  Receive Date: 20110812
  Receipt Date: 20110729
  Transmission Date: 20111222
  Serious: Yes (Hospitalization, Other)
  Sender: FDA-Public Use
  Company Number: EU-2011-10035

PATIENT
  Age: 93 Year
  Sex: Female

DRUGS (7)
  1. ATORVASTATIN [Concomitant]
  2. ASPIRIN [Concomitant]
  3. ISOSORBIDE MONONITRATE [Concomitant]
  4. GLICLAZIDE (GLICLAZIDE) [Concomitant]
  5. SAMSCA [Suspect]
     Indication: HYPONATRAEMIA
     Dosage: 15 MG MILLIGRAM(S), QD, ORAL
     Route: 048
     Dates: start: 20100804, end: 20100811
  6. SAMSCA [Suspect]
     Indication: HYPONATRAEMIA
     Dosage: 15 MG MILLIGRAM(S), QD, ORAL
     Route: 048
     Dates: start: 20110813, end: 20110819
  7. ATENOLOL [Concomitant]

REACTIONS (4)
  - LOWER RESPIRATORY TRACT INFECTION [None]
  - FALL [None]
  - MYOCLONUS [None]
  - FEMORAL NECK FRACTURE [None]
